FAERS Safety Report 20020823 (Version 1)
Quarter: 2021Q4

REPORT INFORMATION
  Report Type: Spontaneous
  Country: DE (occurrence: DE)
  Receive Date: 20211101
  Receipt Date: 20211101
  Transmission Date: 20220303
  Serious: Yes (Death, Life-Threatening, Hospitalization)
  Sender: FDA-Public Use
  Company Number: DE-NOVARTISPH-NVSC2021DE248979

PATIENT
  Age: 19 Year
  Sex: Female
  Weight: 50.9 kg

DRUGS (17)
  1. TOPOTECAN HYDROCHLORIDE [Suspect]
     Active Substance: TOPOTECAN HYDROCHLORIDE
     Indication: Refractory cancer
     Dosage: 0.75 MG/M2, QD (MAXIMUM 5 DAYS EVERY 21 DAYS)
     Route: 042
     Dates: start: 20210821, end: 20210825
  2. TOPOTECAN HYDROCHLORIDE [Suspect]
     Active Substance: TOPOTECAN HYDROCHLORIDE
     Indication: Recurrent cancer
  3. CYCLOPHOSPHAMIDE [Suspect]
     Active Substance: CYCLOPHOSPHAMIDE
     Indication: Refractory cancer
     Dosage: 250 MG/M2, QD (MAXIMUM 5 DAYS EVERY 21 DAYS)
     Route: 042
     Dates: start: 20210821, end: 20210825
  4. CYCLOPHOSPHAMIDE [Suspect]
     Active Substance: CYCLOPHOSPHAMIDE
     Indication: Recurrent cancer
  5. IFOSFAMIDE [Suspect]
     Active Substance: IFOSFAMIDE
     Indication: Synovial sarcoma
     Dosage: UNK
     Route: 065
     Dates: start: 20180217, end: 20190504
  6. VENETOCLAX [Suspect]
     Active Substance: VENETOCLAX
     Indication: Recurrent cancer
     Dosage: 400 MG, QD
     Route: 048
     Dates: start: 20210819, end: 20210819
  7. VENETOCLAX [Suspect]
     Active Substance: VENETOCLAX
     Indication: Refractory cancer
     Dosage: 800 MG, QD
     Route: 048
     Dates: start: 20210820
  8. MESNA [Concomitant]
     Active Substance: MESNA
     Indication: Chemotherapy
     Dosage: 200 MG, QD
     Route: 065
     Dates: start: 20210821, end: 20210825
  9. PENICILLIN V [Concomitant]
     Active Substance: PENICILLIN V
     Indication: Prophylaxis
     Dosage: 2 UNK, QD (0.5 MEGA)
     Route: 048
     Dates: start: 20210718, end: 20210901
  10. LACTULOSE [Concomitant]
     Active Substance: LACTULOSE
     Indication: Prophylaxis
     Dosage: 40 ML, QD
     Route: 048
     Dates: start: 20210722, end: 20210830
  11. LASIX [Concomitant]
     Active Substance: FUROSEMIDE
     Indication: Urinary retention
     Dosage: 80 MG, QD
     Route: 042
     Dates: start: 20210824, end: 20210901
  12. LASIX [Concomitant]
     Active Substance: FUROSEMIDE
     Dosage: 4 UNK, QD (5 MG/ML, 4.5 ML/HR)
     Route: 042
     Dates: start: 20210902
  13. FENTANYL [Concomitant]
     Active Substance: FENTANYL
     Indication: Tumour pain
     Dosage: UNK
     Route: 061
     Dates: start: 20210708
  14. GRANISETRON [Concomitant]
     Active Substance: GRANISETRON
     Indication: Prophylaxis of nausea and vomiting
     Dosage: 1 MG
     Route: 042
     Dates: start: 20210821
  15. PREGABALIN [Concomitant]
     Active Substance: PREGABALIN
     Indication: Neuralgia
     Dosage: 3 UNK, QD (50-50-75 MG)
     Route: 048
     Dates: start: 20210708
  16. ENANTONE LP [Concomitant]
     Active Substance: LEUPROLIDE ACETATE
     Indication: Hormone replacement therapy
     Dosage: 11.25 MG, Q3MO
     Route: 030
     Dates: start: 20210718
  17. NOVALGIN [Concomitant]
     Indication: Tumour pain
     Dosage: 1500 MG, QD
     Route: 048
     Dates: start: 20210708, end: 20210901

REACTIONS (4)
  - Cardiovascular insufficiency [Fatal]
  - Hypotension [Fatal]
  - Escherichia sepsis [Fatal]
  - Cystitis haemorrhagic [Unknown]

NARRATIVE: CASE EVENT DATE: 20210825
